FAERS Safety Report 7898490-5 (Version None)
Quarter: 2011Q4

REPORT INFORMATION
  Report Type: 
  Country: None (occurrence: None)
  Receive Date: 20111103
  Receipt Date: 20111019
  Transmission Date: 20120403
  Serious: Yes (Hospitalization)
  Sender: FDA-Public Use
  Company Number: GER/GER/11/0021714

PATIENT
  Age: 46 Year
  Sex: Female
  Weight: 55 kg

DRUGS (2)
  1. CITALOPRAM HYDROBROMIDE [Suspect]
     Indication: INTENTIONAL OVERDOSE
     Dosage: 20 MG, 70 TABLETS, ORAL
     Route: 048
  2. OPIPRAMOL (OPIPRAMOL) [Suspect]
     Indication: INTENTIONAL OVERDOSE
     Dosage: 50 MG, 10 TABLETS. ORAL
     Route: 048

REACTIONS (14)
  - MEMORY IMPAIRMENT [None]
  - BLOOD CREATINE PHOSPHOKINASE INCREASED [None]
  - TOXICITY TO VARIOUS AGENTS [None]
  - AGITATION [None]
  - MENTAL IMPAIRMENT [None]
  - ASPARTATE AMINOTRANSFERASE INCREASED [None]
  - ELECTROCARDIOGRAM QT PROLONGED [None]
  - MULTIPLE DRUG OVERDOSE INTENTIONAL [None]
  - ATAXIA [None]
  - BLOOD PRESSURE SYSTOLIC INCREASED [None]
  - GAMMA-GLUTAMYLTRANSFERASE INCREASED [None]
  - SUICIDE ATTEMPT [None]
  - BLOOD MAGNESIUM DECREASED [None]
  - ANAEMIA [None]
